FAERS Safety Report 16462424 (Version 1)
Quarter: 2019Q2

REPORT INFORMATION
  Report Type: Spontaneous
  Country: ES (occurrence: ES)
  Receive Date: 20190621
  Receipt Date: 20190621
  Transmission Date: 20190711
  Serious: Yes (Other)
  Sender: FDA-Public Use
  Company Number: ES-PFIZER INC-2019261655

PATIENT
  Age: 62 Year
  Sex: Female
  Weight: 61.3 kg

DRUGS (13)
  1. ALLOPURINOL. [Concomitant]
     Active Substance: ALLOPURINOL
     Indication: TUMOUR LYSIS SYNDROME
     Dosage: 300 MG, 1X/DAY (300MG /24H)
     Route: 048
     Dates: start: 20190502
  2. DEXCHLORPHENIRAMINE [Concomitant]
     Active Substance: DEXCHLORPHENIRAMINE
     Indication: PREMEDICATION
     Dosage: 2 MG, 3X/DAY (2MG /8H)
     Route: 042
     Dates: start: 20190502
  3. VORICONAZOL [Concomitant]
     Active Substance: VORICONAZOLE
     Indication: ANTIBIOTIC PROPHYLAXIS
     Dosage: 200 MG, 2X/DAY (200MG /12H)
     Route: 048
     Dates: start: 20190502
  4. VALACICLOVIR [Concomitant]
     Active Substance: VALACYCLOVIR HYDROCHLORIDE
     Indication: ANTIBIOTIC PROPHYLAXIS
     Dosage: 500 MG, 2X/DAY (500MG /12H)
     Route: 048
     Dates: start: 20190502
  5. OMEPRAZOL [Concomitant]
     Active Substance: OMEPRAZOLE
     Indication: PREMEDICATION
     Dosage: 40 MG, 1X/DAY (40MG /24H)
     Route: 042
     Dates: start: 20190502
  6. METOCLOPRAMID [METOCLOPRAMIDE HYDROCHLORIDE] [Concomitant]
     Indication: PREMEDICATION
     Dosage: 10 MG, 3X/DAY (10MG /8H)
     Route: 042
     Dates: start: 20190503
  7. FUROSEMIDE. [Concomitant]
     Active Substance: FUROSEMIDE
     Indication: PREMEDICATION
     Dosage: 20 MG, 2X/DAY (20MG /12H)
     Route: 042
     Dates: start: 20190503
  8. ZAVEDOS [Suspect]
     Active Substance: IDARUBICIN
     Indication: ACUTE MYELOID LEUKAEMIA
     Dosage: 20 MG, 1X/DAY (20MG/24H FOR 3 DAYS)
     Dates: start: 20190503, end: 20190505
  9. CITARABINA ACCORD [Suspect]
     Active Substance: CYTARABINE
     Indication: ACUTE MYELOID LEUKAEMIA
     Dosage: 336 MG, 1X/DAY (336MG /24H FOR 5 DAYS)
     Route: 042
     Dates: start: 20190503, end: 20190509
  10. LORMETAZEPAM [Concomitant]
     Active Substance: LORMETAZEPAM
     Dosage: 1 MG, 1X/DAY (1MG /24H)
     Route: 048
     Dates: start: 20190502
  11. PARACETAMOL [Concomitant]
     Active Substance: ACETAMINOPHEN
     Indication: PREMEDICATION
     Dosage: 1 G, 4X/DAY (1G /6H)
     Route: 042
     Dates: start: 20190503
  12. MEROPENEM. [Concomitant]
     Active Substance: MEROPENEM
     Indication: ANTIBIOTIC PROPHYLAXIS
     Dosage: 1 G, 3X/DAY (1G /8H)
     Route: 042
     Dates: start: 20190502
  13. ONDANSETRON [Concomitant]
     Active Substance: ONDANSETRON
     Indication: PREMEDICATION
     Dosage: 8 MG, 3X/DAY (8MG /8H)
     Route: 042
     Dates: start: 20190503

REACTIONS (1)
  - Perichondritis [Recovered/Resolved]

NARRATIVE: CASE EVENT DATE: 20190507
